FAERS Safety Report 17882105 (Version 1)
Quarter: 2020Q2

REPORT INFORMATION
  Report Type: Spontaneous
  Country: IN (occurrence: IN)
  Receive Date: 20200610
  Receipt Date: 20200610
  Transmission Date: 20200714
  Serious: Yes (Other)
  Sender: FDA-Public Use
  Company Number: NVSC2020IN160706

PATIENT
  Age: 64 Year
  Sex: Female

DRUGS (2)
  1. FUROSEMIDE. [Suspect]
     Active Substance: FUROSEMIDE
     Indication: CHYLOTHORAX
     Dosage: 40 MG, QD
     Route: 065
  2. SPIRONOLACTONE. [Suspect]
     Active Substance: SPIRONOLACTONE
     Indication: CHYLOTHORAX
     Dosage: 100 MG, QD
     Route: 065

REACTIONS (2)
  - Drug intolerance [Unknown]
  - Renal impairment [Recovered/Resolved]
